FAERS Safety Report 4480492-2 (Version None)
Quarter: 2004Q4

REPORT INFORMATION
  Report Type: 
  Country: None (occurrence: None)
  Receive Date: 20041018
  Receipt Date: 20041005
  Transmission Date: 20050328
  Serious: Yes (Death)
  Sender: FDA-Public Use
  Company Number: MK200410-0112-1

PATIENT
  Age: 23 Year
  Sex: Female

DRUGS (3)
  1. ANAFRANIL [Suspect]
  2. DIPHENHYDRAMINE HCL [Concomitant]
  3. PROPOXYPHENE [Concomitant]

REACTIONS (7)
  - ANXIETY [None]
  - CARDIO-RESPIRATORY ARREST [None]
  - CONFUSIONAL STATE [None]
  - DRUG LEVEL INCREASED [None]
  - DYSPNOEA [None]
  - PNEUMONIA [None]
  - TOXICOLOGIC TEST ABNORMAL [None]
